FAERS Safety Report 4576553-X (Version None)
Quarter: 2005Q1

REPORT INFORMATION
  Report Type: 
  Country: None (occurrence: None)
  Receive Date: 20050119
  Receipt Date: 20040514
  Transmission Date: 20050727
  Serious: Yes (Hospitalization)
  Sender: FDA-Public Use
  Company Number: A03200401564

PATIENT
  Age: 79 Year
  Sex: Female
  Weight: 62.1428 kg

DRUGS (9)
  1. PLAVIX [Suspect]
     Indication: TRANSIENT ISCHAEMIC ATTACK
     Dosage: 75 MG QD - ORAL
     Route: 048
     Dates: start: 20040426, end: 20040501
  2. GLIMEPIRIDE [Concomitant]
  3. RALOXIFENE HCL [Concomitant]
  4. METFORMIN HCL [Concomitant]
  5. RAMIPRIL [Concomitant]
  6. DISOPYRAMIDE PHOSPHATE [Concomitant]
  7. GABAPENTIN [Concomitant]
  8. FENOFIBRATE [Concomitant]
  9. ATENOLOL [Concomitant]

REACTIONS (3)
  - ASTHENIA [None]
  - FEELING ABNORMAL [None]
  - UPPER GASTROINTESTINAL HAEMORRHAGE [None]
